FAERS Safety Report 8025776-6 (Version None)
Quarter: 2012Q1

REPORT INFORMATION
  Report Type: 
  Country: None (occurrence: None)
  Receive Date: 20120105
  Receipt Date: 20110826
  Transmission Date: 20120608
  Serious: No
  Sender: FDA-Public Use
  Company Number: US-ABBOTT-11P-163-0849899-00

PATIENT
  Sex: Female

DRUGS (1)
  1. SYNTHROID [Suspect]
     Indication: PRODUCT USED FOR UNKNOWN INDICATION
     Dates: start: 20040101

REACTIONS (6)
  - PRODUCT QUALITY ISSUE [None]
  - FATIGUE [None]
  - DRUG INEFFECTIVE [None]
  - SLUGGISHNESS [None]
  - HOT FLUSH [None]
  - WEIGHT INCREASED [None]
